FAERS Safety Report 4417087-2 (Version None)
Quarter: 2004Q2

REPORT INFORMATION
  Report Type: 
  Country: None (occurrence: None)
  Receive Date: 20040628
  Receipt Date: 20031110
  Transmission Date: 20050107
  Serious: No
  Sender: FDA-Public Use
  Company Number: USA-2003-0010738

PATIENT
  Age: 42 Year
  Sex: Male

DRUGS (1)
  1. SPECTRACEF [Suspect]
     Indication: SINUSITIS
     Dosage: 400 MG, BID

REACTIONS (1)
  - SPUTUM DISCOLOURED [None]
